FAERS Safety Report 8339528-0 (Version None)
Quarter: 2012Q2

REPORT INFORMATION
  Report Type: 
  Country: None (occurrence: None)
  Receive Date: 20120507
  Receipt Date: 20120504
  Transmission Date: 20120825
  Serious: Yes (Life-Threatening, Hospitalization)
  Sender: FDA-Public Use
  Company Number: AU-B.I. PHARMACEUTICALS,INC./RIDGEFIELD-2012-AU-00782AU

PATIENT
  Sex: Female
  Weight: 90 kg

DRUGS (2)
  1. INDAPAMIDE [Concomitant]
  2. MICARDIS [Suspect]
     Indication: HYPERTENSION
     Dosage: 80 MG
     Dates: start: 20000901, end: 20120414

REACTIONS (3)
  - RHABDOMYOLYSIS [None]
  - BLOOD CREATINE PHOSPHOKINASE INCREASED [None]
  - RESPIRATORY MUSCLE WEAKNESS [None]
